FAERS Safety Report 5099928-1 (Version None)
Quarter: 2006Q3

REPORT INFORMATION
  Report Type: 
  Country: None (occurrence: None)
  Receive Date: 20060906
  Receipt Date: 20060906
  Transmission Date: 20061208
  Serious: Yes (Other)
  Sender: FDA-Public Use
  Company Number: None

PATIENT
  Sex: Male
  Weight: 90.7194 kg

DRUGS (1)
  1. ENBREL [Suspect]
     Dosage: 50 MG 1 X/WK  SQ
     Route: 058
     Dates: start: 20060201, end: 20060905

REACTIONS (1)
  - FOOD ALLERGY [None]
